FAERS Safety Report 12668711 (Version 1)
Quarter: 2016Q3

REPORT INFORMATION
  Report Type: Spontaneous
  Country: US (occurrence: US)
  Receive Date: 20160819
  Receipt Date: 20160819
  Transmission Date: 20161109
  Serious: Yes (Death)
  Sender: FDA-Public Use
  Company Number: US-FRESENIUS MEDICAL CARE RENAL THERAPIES GROUP-FMC-1608-000686

PATIENT
  Sex: Female
  Weight: 62.6 kg

DRUGS (12)
  1. LEVOTHRYOXINE [Concomitant]
     Active Substance: LEVOTHYROXINE
  2. AMPHETAMINE SALT COMBO [Concomitant]
  3. CIPRO [Concomitant]
     Active Substance: CIPROFLOXACIN HYDROCHLORIDE
  4. AMOXICILLIN. [Concomitant]
     Active Substance: AMOXICILLIN
  5. LANTUS [Concomitant]
     Active Substance: INSULIN GLARGINE
  6. CALCITRIOL. [Concomitant]
     Active Substance: CALCITRIOL
  7. CLONAZEPAM. [Concomitant]
     Active Substance: CLONAZEPAM
  8. DELFLEX WITH DEXTROSE 1.5% LOW MAGNESIUM LOW CALCIUM [Suspect]
     Active Substance: CALCIUM CHLORIDE\DEXTROSE\MAGNESIUM CHLORIDE\SODIUM CHLORIDE\SODIUM LACTATE
     Indication: END STAGE RENAL DISEASE
     Route: 033
     Dates: start: 201512
  9. DELFLEX WITH DEXTROSE 2.5% LOW MAGNESIUM LOW CALCIUM [Suspect]
     Active Substance: CALCIUM CHLORIDE\DEXTROSE\MAGNESIUM CHLORIDE\SODIUM CHLORIDE\SODIUM LACTATE
     Indication: END STAGE RENAL DISEASE
  10. HUMALOG [Concomitant]
     Active Substance: INSULIN LISPRO
  11. LOSARTAN. [Concomitant]
     Active Substance: LOSARTAN
  12. METOPROLOL TARTRATE. [Concomitant]
     Active Substance: METOPROLOL TARTRATE

REACTIONS (4)
  - Cardiac arrest [Fatal]
  - Failure to thrive [None]
  - Disease complication [None]
  - Cachexia [None]
